FAERS Safety Report 24879546 (Version 1)
Quarter: 2025Q1

REPORT INFORMATION
  Report Type: Spontaneous
  Country: US (occurrence: US)
  Receive Date: 20250123
  Receipt Date: 20250123
  Transmission Date: 20250409
  Serious: Yes (Other)
  Sender: CATALYST PHARMA
  Company Number: US-CATALYSTPHARMACEUTICALPARTNERS-US-CATA-25-00073

PATIENT
  Age: 63 Year
  Sex: Male

DRUGS (1)
  1. FYCOMPA [Suspect]
     Active Substance: PERAMPANEL
     Indication: Product used for unknown indication
     Route: 065

REACTIONS (6)
  - Seizure [Unknown]
  - Economic problem [Unknown]
  - Scratch [Unknown]
  - Periorbital haematoma [Unknown]
  - Wrong technique in product usage process [Unknown]
  - Wrong technique in product usage process [Unknown]

NARRATIVE: CASE EVENT DATE: 20250103
